FAERS Safety Report 10095217 (Version 2)
Quarter: 2014Q2

REPORT INFORMATION
  Report Type: Spontaneous
  Country: US (occurrence: US)
  Receive Date: 20140422
  Receipt Date: 20140422
  Transmission Date: 20141212
  Serious: No
  Sender: FDA-Public Use
  Company Number: US-GILEAD-2012-0058062

PATIENT
  Sex: Male

DRUGS (9)
  1. LETAIRIS [Suspect]
     Indication: PULMONARY HYPERTENSION
     Dosage: 5 MG, UNK
     Route: 048
     Dates: start: 20120629
  2. LETAIRIS [Suspect]
     Indication: OBESITY
  3. LETAIRIS [Suspect]
     Indication: HYPOVENTILATION
  4. LETAIRIS [Suspect]
     Indication: SLEEP APNOEA SYNDROME
  5. LETAIRIS [Suspect]
     Indication: PULMONARY HYPERTENSION
  6. LETAIRIS [Suspect]
     Indication: DRUG ABUSE
  7. LETAIRIS [Suspect]
     Indication: PULMONARY HYPERTENSION
  8. LETAIRIS [Suspect]
     Indication: DRUG ABUSE
  9. TYVASO [Suspect]

REACTIONS (2)
  - Nausea [Unknown]
  - Headache [Unknown]
